FAERS Safety Report 8200559-2 (Version None)
Quarter: 2012Q1

REPORT INFORMATION
  Report Type: 
  Country: None (occurrence: None)
  Receive Date: 20120302
  Receipt Date: 20120209
  Transmission Date: 20120608
  Serious: Yes (Other)
  Sender: FDA-Public Use
  Company Number: 2012031418

PATIENT
  Sex: Female

DRUGS (1)
  1. HIZENTRA [Suspect]
     Dosage: (SUBCUTANEOUS)
     Route: 058

REACTIONS (2)
  - MENINGITIS [None]
  - PRODUCT SUBSTITUTION ISSUE [None]
